FAERS Safety Report 8907513 (Version 2)
Quarter: 2013Q1

REPORT INFORMATION
  Report Type: Spontaneous
  Country: CL (occurrence: CL)
  Receive Date: 20121114
  Receipt Date: 20130211
  Transmission Date: 20140127
  Serious: Yes (Other)
  Sender: FDA-Public Use
  Company Number: CL-PFIZER INC-2012284128

PATIENT
  Age: 70 Year
  Sex: Male
  Weight: 67 kg

DRUGS (5)
  1. CARDURA XL [Suspect]
     Dosage: 2 DF, 1X/DAY (IN THE MORNING)
     Route: 048
     Dates: start: 201206
  2. VERAPAMIL [Concomitant]
     Dosage: 120 MG, 2X/DAY
  3. SYMBICORT [Concomitant]
  4. AEROLIN ^GLAXO WELLCOME^ [Concomitant]
  5. BERODUAL [Concomitant]

REACTIONS (4)
  - Angiopathy [Recovered/Resolved]
  - Respiratory tract infection [Recovering/Resolving]
  - Breast enlargement [Recovering/Resolving]
  - Pollakiuria [Recovering/Resolving]
